FAERS Safety Report 8974734 (Version 2)
Quarter: 2013Q1

REPORT INFORMATION
  Report Type: Spontaneous
  Country: CH (occurrence: CH)
  Receive Date: 20121219
  Receipt Date: 20130115
  Transmission Date: 20140127
  Serious: Yes (Other)
  Sender: FDA-Public Use
  Company Number: CH-ROCHE-1170954

PATIENT
  Sex: Male

DRUGS (2)
  1. MABTHERA [Suspect]
     Indication: MANTLE CELL LYMPHOMA
     Dosage: 6 CYCLES
     Route: 042
  2. MABTHERA [Suspect]
     Dosage: 6 CYCLES
     Route: 065

REACTIONS (1)
  - Lymphoma [Not Recovered/Not Resolved]
